FAERS Safety Report 6908992-3 (Version None)
Quarter: 2010Q3

REPORT INFORMATION
  Report Type: 
  Country: None (occurrence: None)
  Receive Date: 20100805
  Receipt Date: 20100721
  Transmission Date: 20110219
  Serious: Yes (Disabling, Other)
  Sender: FDA-Public Use
  Company Number: US-BAYER-201029465NA

PATIENT
  Age: 18 Year
  Sex: Female
  Weight: 86 kg

DRUGS (6)
  1. YAZ [Suspect]
     Indication: MENSTRUATION IRREGULAR
     Route: 048
     Dates: start: 20070901, end: 20071227
  2. SULFAMETHOXAZOLE AND TRIMETHOPRIM [Concomitant]
     Dates: start: 20070920, end: 20071226
  3. IBUPROFEN [Concomitant]
  4. MOTRIN [Concomitant]
  5. STRATTERA [Concomitant]
     Indication: ATTENTION DEFICIT/HYPERACTIVITY DISORDER
     Dosage: 1 TABLET
     Route: 048
     Dates: start: 20070101, end: 20071201
  6. PREDNISONE [Concomitant]
     Dates: start: 20071218, end: 20071226

REACTIONS (8)
  - CHEST PAIN [None]
  - DEEP VEIN THROMBOSIS [None]
  - DYSPNOEA [None]
  - FATIGUE [None]
  - HAEMOPTYSIS [None]
  - NAUSEA [None]
  - PULMONARY EMBOLISM [None]
  - WEIGHT INCREASED [None]
